FAERS Safety Report 16982129 (Version 1)
Quarter: 2019Q4

REPORT INFORMATION
  Report Type: Spontaneous
  Country: US (occurrence: US)
  Receive Date: 20191101
  Receipt Date: 20191101
  Transmission Date: 20200122
  Serious: No
  Sender: FDA-Public Use
  Company Number: US-ASTRAZENECA-2019SF41355

PATIENT
  Age: 26293 Day
  Sex: Female
  Weight: 86.2 kg

DRUGS (1)
  1. FASENRA [Suspect]
     Active Substance: BENRALIZUMAB
     Indication: ASTHMA
     Route: 058
     Dates: start: 20190819

REACTIONS (5)
  - Fatigue [Recovered/Resolved]
  - Cold sweat [Recovering/Resolving]
  - Pain [Recovered/Resolved]
  - Dizziness [Recovering/Resolving]
  - Intercepted product administration error [Unknown]

NARRATIVE: CASE EVENT DATE: 20190820
